FAERS Safety Report 4731466-5 (Version None)
Quarter: 2005Q3

REPORT INFORMATION
  Report Type: 
  Country: None (occurrence: None)
  Receive Date: 20050801
  Receipt Date: 20050801
  Transmission Date: 20060218
  Serious: Yes (Other)
  Sender: FDA-Public Use
  Company Number: None

PATIENT
  Age: 34 Year
  Sex: Male
  Weight: 96.1626 kg

DRUGS (1)
  1. CIALIS [Suspect]
     Indication: ERECTILE DYSFUNCTION
     Dosage: 20MG   ONCE A DAY   ORAL
     Route: 048
     Dates: start: 20050705, end: 20050706

REACTIONS (5)
  - BACK PAIN [None]
  - CHILLS [None]
  - EPISTAXIS [None]
  - ERECTILE DYSFUNCTION [None]
  - SKIN ODOUR ABNORMAL [None]
